FAERS Safety Report 7053228-9 (Version None)
Quarter: 2010Q4

REPORT INFORMATION
  Report Type: 
  Country: None (occurrence: None)
  Receive Date: 20101020
  Receipt Date: 20101006
  Transmission Date: 20110411
  Serious: Yes (Other)
  Sender: FDA-Public Use
  Company Number: US-ELI_LILLY_AND_COMPANY-US201010001842

PATIENT
  Sex: Female

DRUGS (1)
  1. FORTEO [Suspect]
     Indication: OSTEOPOROSIS
     Dosage: 20 UG, DAILY (1/D)
     Dates: start: 20100922, end: 20100929

REACTIONS (7)
  - BLINDNESS TRANSIENT [None]
  - DIZZINESS [None]
  - EMOTIONAL DISTRESS [None]
  - HALO VISION [None]
  - NAUSEA [None]
  - THINKING ABNORMAL [None]
  - VISION BLURRED [None]
